FAERS Safety Report 4990877-3 (Version None)
Quarter: 2006Q2

REPORT INFORMATION
  Report Type: 
  Country: None (occurrence: None)
  Receive Date: 20060428
  Receipt Date: 20060414
  Transmission Date: 20061013
  Serious: No
  Sender: FDA-Public Use
  Company Number: 34459

PATIENT

DRUGS (1)
  1. VIGAMOX [Suspect]

REACTIONS (2)
  - FUSARIUM INFECTION [None]
  - KERATITIS FUNGAL [None]
